FAERS Safety Report 13678911 (Version 1)
Quarter: 2017Q2

REPORT INFORMATION
  Report Type: Spontaneous
  Country: FR (occurrence: FR)
  Receive Date: 20170622
  Receipt Date: 20170622
  Transmission Date: 20170830
  Serious: Yes (Hospitalization)
  Sender: FDA-Public Use
  Company Number: FR-JNJFOC-20170619608

PATIENT
  Age: 21 Year
  Sex: Male
  Weight: 51 kg

DRUGS (8)
  1. CISPLATINE [Suspect]
     Active Substance: CISPLATIN
     Indication: SARCOMA METASTATIC
     Route: 065
     Dates: start: 20170320
  2. DOXORUBICIN [Suspect]
     Active Substance: DOXORUBICIN
     Indication: SARCOMA METASTATIC
     Route: 042
     Dates: start: 20170320, end: 20170320
  3. LOVENOX [Suspect]
     Active Substance: ENOXAPARIN SODIUM
     Indication: SARCOMA METASTATIC
     Route: 065
     Dates: start: 20170227
  4. DOXORUBICIN [Suspect]
     Active Substance: DOXORUBICIN
     Indication: SARCOMA METASTATIC
     Route: 042
     Dates: start: 20170411
  5. TOPALGIC (FRANCE) [Suspect]
     Active Substance: TRAMADOL
     Indication: PAIN
     Route: 048
     Dates: start: 20170227
  6. HOLOXAN [Suspect]
     Active Substance: IFOSFAMIDE
     Indication: SARCOMA METASTATIC
     Route: 065
     Dates: start: 20170227
  7. DOXORUBICIN [Suspect]
     Active Substance: DOXORUBICIN
     Indication: SARCOMA METASTATIC
     Route: 042
     Dates: start: 20170227, end: 20170227
  8. INIPOMP [Suspect]
     Active Substance: PANTOPRAZOLE SODIUM
     Indication: GASTROOESOPHAGEAL REFLUX DISEASE
     Route: 048
     Dates: start: 20170227

REACTIONS (1)
  - Hepatocellular injury [Recovered/Resolved]

NARRATIVE: CASE EVENT DATE: 20170430
